FAERS Safety Report 7284366-3 (Version None)
Quarter: 2011Q1

REPORT INFORMATION
  Report Type: 
  Country: None (occurrence: None)
  Receive Date: 20110126
  Receipt Date: 20110114
  Transmission Date: 20110831
  Serious: Yes (Hospitalization)
  Sender: FDA-Public Use
  Company Number: 2011-0149

PATIENT
  Sex: Male
  Weight: 93.4 kg

DRUGS (8)
  1. CLONAZEPAM [Concomitant]
  2. SINEMET [Concomitant]
  3. HYDROCORTONE [Concomitant]
  4. APOKYN [Suspect]
     Dosage: NOT REPORTED (0.02 L, AS REQUIRED)
     Dates: start: 20101201
  5. NAPROXEN [Concomitant]
  6. ASPIRIN [Concomitant]
  7. ZOLOFT [Concomitant]
  8. MULTIVITAMIN (MULTIVITAMIN /008312701) [Concomitant]

REACTIONS (3)
  - HEPATIC INFECTION BACTERIAL [None]
  - FEELING ABNORMAL [None]
  - FALL [None]
